FAERS Safety Report 4597365-7 (Version None)
Quarter: 2005Q1

REPORT INFORMATION
  Report Type: 
  Country: None (occurrence: None)
  Receive Date: 20050303
  Receipt Date: 20040901
  Transmission Date: 20050727
  Serious: No
  Sender: FDA-Public Use
  Company Number: US-GLAXOSMITHKLINE-A0524220A

PATIENT
  Age: 24 Year
  Sex: Female

DRUGS (2)
  1. REQUIP [Suspect]
     Indication: DEPRESSION
     Route: 048
  2. CONTRACEPTIVE [Suspect]
     Indication: ILL-DEFINED DISORDER
     Route: 061

REACTIONS (3)
  - ACNE [None]
  - HIRSUTISM [None]
  - SKIN HYPERPIGMENTATION [None]
